FAERS Safety Report 17605436 (Version 1)
Quarter: 2020Q1

REPORT INFORMATION
  Report Type: Spontaneous
  Country: US (occurrence: US)
  Receive Date: 20200330
  Receipt Date: 20200330
  Transmission Date: 20200409
  Serious: Yes (Hospitalization)
  Sender: FDA-Public Use
  Company Number: None

PATIENT
  Age: 80 Year
  Sex: Male
  Weight: 94 kg

DRUGS (2)
  1. AZATHIOPRINE (AZATHIOPRINE 50MG TAB) [Suspect]
     Active Substance: AZATHIOPRINE
     Indication: AUTOIMMUNE HEPATITIS
     Route: 048
     Dates: start: 20180227, end: 20180624
  2. PREDNISONE (PREDNISONE 10MG TAB) [Suspect]
     Active Substance: PREDNISONE
     Route: 048
     Dates: start: 20180120, end: 20180624

REACTIONS (2)
  - Sepsis [None]
  - Infection [None]

NARRATIVE: CASE EVENT DATE: 20180606
